FAERS Safety Report 4839860-9 (Version None)
Quarter: 2005Q4

REPORT INFORMATION
  Report Type: 
  Country: None (occurrence: None)
  Receive Date: 20051129
  Receipt Date: 20050406
  Transmission Date: 20060501
  Serious: Yes (Hospitalization, Disabling)
  Sender: FDA-Public Use
  Company Number: US-ROCHE-401307

PATIENT
  Age: 27 Year
  Sex: Female
  Weight: 120.2 kg

DRUGS (1)
  1. ACCUTANE [Suspect]
     Indication: ACNE
     Dosage: TAKEN IN EITHER LATE 1997 OR EARLY 1998.
     Route: 048

REACTIONS (38)
  - AMNIOTIC FLUID VOLUME DECREASED [None]
  - ANAEMIA [None]
  - ANHEDONIA [None]
  - ANTINUCLEAR ANTIBODY POSITIVE [None]
  - ANXIETY [None]
  - BACTERIA URINE IDENTIFIED [None]
  - BETA HAEMOLYTIC STREPTOCOCCAL INFECTION [None]
  - BLOOD GLUCOSE INCREASED [None]
  - CAESAREAN SECTION [None]
  - CANDIDIASIS [None]
  - CHORIOAMNIONITIS [None]
  - COLITIS [None]
  - COLITIS ULCERATIVE [None]
  - CONDITION AGGRAVATED [None]
  - CROHN'S DISEASE [None]
  - DIVERTICULUM [None]
  - DRUG EXPOSURE DURING PREGNANCY [None]
  - ECONOMIC PROBLEM [None]
  - ECZEMA [None]
  - ENTEROBACTER INFECTION [None]
  - ESCHERICHIA INFECTION [None]
  - GASTROINTESTINAL DISORDER [None]
  - HAEMORRHAGE [None]
  - INFLAMMATORY BOWEL DISEASE [None]
  - INTERNAL INJURY [None]
  - INTESTINAL HAEMORRHAGE [None]
  - MENSTRUATION IRREGULAR [None]
  - MULTI-ORGAN FAILURE [None]
  - PAIN [None]
  - PARAINFLUENZAE VIRUS INFECTION [None]
  - POLYP [None]
  - POSTOPERATIVE WOUND INFECTION [None]
  - PREGNANCY [None]
  - PROTEIN URINE PRESENT [None]
  - RECTAL HAEMORRHAGE [None]
  - RHEUMATOID ARTHRITIS [None]
  - SJOGREN'S SYNDROME [None]
  - URINE ANALYSIS ABNORMAL [None]
